FAERS Safety Report 7506347-4 (Version None)
Quarter: 2011Q2

REPORT INFORMATION
  Report Type: 
  Country: None (occurrence: None)
  Receive Date: 20110526
  Receipt Date: 20101227
  Transmission Date: 20111010
  Serious: No
  Sender: FDA-Public Use
  Company Number: US-ABBOTT-10P-163-0694376-00

PATIENT
  Sex: Female
  Weight: 90.8 kg

DRUGS (1)
  1. ZEMPLAR [Suspect]
     Indication: RENAL FAILURE
     Dates: start: 20100901

REACTIONS (2)
  - PULMONARY OEDEMA [None]
  - COUGH [None]
